FAERS Safety Report 11113495 (Version 6)
Quarter: 2017Q1

REPORT INFORMATION
  Report Type: Report from Study
  Country: DE (occurrence: DE)
  Receive Date: 20150514
  Receipt Date: 20170223
  Transmission Date: 20170428
  Serious: Yes (Life-Threatening, Other)
  Sender: FDA-Public Use
  Company Number: DE-GILEAD-2015-0135320

PATIENT
  Age: 63 Year
  Sex: Male
  Weight: 88 kg

DRUGS (6)
  1. DACLATASVIR. [Concomitant]
     Active Substance: DACLATASVIR
     Indication: CHRONIC HEPATITIS C
     Dosage: 60 MG, QD
     Route: 048
     Dates: start: 20141119, end: 20150506
  2. URSOFALK [Concomitant]
     Active Substance: URSODIOL
     Dosage: UNK, PRN
     Dates: end: 20141118
  3. LACTULOSE AL [Concomitant]
     Active Substance: LACTULOSE
     Dosage: UNK
  4. SOFOSBUVIR [Suspect]
     Active Substance: SOFOSBUVIR
     Indication: CHRONIC HEPATITIS C
     Dosage: 400 MG, QD
     Route: 048
     Dates: start: 20141119, end: 20150506
  5. LACTULOSE AL [Concomitant]
     Active Substance: LACTULOSE
     Dosage: UNK UNK, BID
     Dates: end: 20150511
  6. CITALOPRAM BIOEQ [Concomitant]
     Dosage: 30 MG, UNK

REACTIONS (4)
  - Productive cough [Recovered/Resolved]
  - Disturbance in attention [Not Recovered/Not Resolved]
  - Hepatocellular carcinoma [Not Recovered/Not Resolved]
  - Fatigue [Not Recovered/Not Resolved]

NARRATIVE: CASE EVENT DATE: 20150409
